FAERS Safety Report 5704503-9 (Version None)
Quarter: 2008Q2

REPORT INFORMATION
  Report Type: 
  Country: None (occurrence: None)
  Receive Date: 20080409
  Receipt Date: 20080325
  Transmission Date: 20081010
  Serious: Yes (Other)
  Sender: FDA-Public Use
  Company Number: DSM-2008-00311

PATIENT
  Sex: Female

DRUGS (2)
  1. OLMETEC PLUS (HYDROCHLOROTHIAZIDE, OLMESARTAN MEDOXOMIL) (TABLET) (HYD [Suspect]
     Indication: HYPERTENSION
     Dosage: 20/25 MG (1 IN 1 D); ORAL
     Route: 048
     Dates: start: 20080321, end: 20080325
  2. IBUPROFEN (IBUPROFEN) (TABLET) (IBUPROFEN) [Concomitant]

REACTIONS (2)
  - NECROSIS [None]
  - PAIN IN EXTREMITY [None]
